FAERS Safety Report 24643979 (Version 1)
Quarter: 2024Q4

REPORT INFORMATION
  Report Type: Spontaneous
  Country: DE (occurrence: DE)
  Receive Date: 20241120
  Receipt Date: 20241120
  Transmission Date: 20250115
  Serious: Yes (Hospitalization, Other)
  Sender: FRESENIUS KABI
  Company Number: DE-AUROBINDO-AUR-APL-2024-024236

PATIENT
  Age: 58 Year
  Sex: Male

DRUGS (4)
  1. LEUCOVORIN [Suspect]
     Active Substance: LEUCOVORIN\LEUCOVORIN CALCIUM
     Indication: Oesophageal adenocarcinoma
  2. OXALIPLATIN [Suspect]
     Active Substance: OXALIPLATIN
     Indication: Oesophageal adenocarcinoma
  3. TISLELIZUMAB [Suspect]
     Active Substance: TISLELIZUMAB
     Indication: Oesophageal adenocarcinoma
     Dosage: FOA: CONCENTRATE FOR SOLUTION FOR INFUSION
  4. FLUOROURACIL [Suspect]
     Active Substance: FLUOROURACIL
     Indication: Oesophageal adenocarcinoma

REACTIONS (3)
  - C-reactive protein increased [Unknown]
  - Pyrexia [Unknown]
  - Infection [Unknown]

NARRATIVE: CASE EVENT DATE: 20240219
